FAERS Safety Report 6127269-X (Version None)
Quarter: 2009Q1

REPORT INFORMATION
  Report Type: 
  Country: None (occurrence: None)
  Receive Date: 20090319
  Receipt Date: 20090305
  Transmission Date: 20090719
  Serious: Yes (Hospitalization)
  Sender: FDA-Public Use
  Company Number: 02100-JPN-06-0585

PATIENT
  Age: 63 Year
  Sex: Female

DRUGS (30)
  1. PLAVIX [Suspect]
     Indication: CEREBRAL INFARCTION
     Dosage: 75 MG, DAILY DOSE ORAL
     Route: 048
     Dates: start: 20060831, end: 20061127
  2. ASPIRIN [Concomitant]
  3. CANDESARTAN CILEXETIL (CANDESARTAN CILEXETIL) UNKNOWN [Concomitant]
  4. HYDROCHLOROTHIAZIDE [Concomitant]
  5. TEPRENONE (TEPRENONE) UNKNOWN [Concomitant]
  6. GINKGO BILOBA LEAF EXTRACT (GINKGO BILOBA LEAF EXTRACT) UNKNOWN [Concomitant]
  7. CLOPIDOGREL [Concomitant]
  8. METFORMIN HCL (METFORMIN HCL) UNKNOWN [Concomitant]
  9. FLUTICASONE PROPIONATE (FLUTICASONE PROPIONATE) UNKNOWN [Concomitant]
  10. SALMETEROL XINAFOATE (SALMETEROL XINAFOATE) UNKNOWN [Concomitant]
  11. DOXOFYLLINE (DOXOFYLLINE) UNKNOWN [Concomitant]
  12. MONTELUKAST (MONTELUKAST) UNKNOWN [Concomitant]
  13. SALBUTAMOL SULFATE (SALBUTAMOL SULFATE) UNKNOWN [Concomitant]
  14. NATEGLINIDE (NATEGLINIDE) UNKNOWN [Concomitant]
  15. ALUMINIUM MAGNESIUM SILOCATE (ALUMINIUM MAGNESIUM SILICATE) UNKNOWN [Concomitant]
  16. BIODIASTASE (BIODIASTASE) UNKNOWN [Concomitant]
  17. GLYCYRRHIZA POWDER (GLYCYRRHIZA POWDER) UNKNOWN [Concomitant]
  18. LIPASE AP6 (LIPASE AP6) UNKNOWN [Concomitant]
  19. PRECIPITATED CALCIUM CARBONATE (PRECIPITATED CALCIUM CARBONATE) UNKNOW [Concomitant]
  20. SCOPOLIA EXTRACT (SCOPOLIA EXTRACT) UNKNOWN [Concomitant]
  21. SODIUM CARBONATE HYDROXIDE (SODIUM CARBONATE HYDROXIDE) UNKNOWN [Concomitant]
  22. TRIMEBUTINE MALEATE (TRIMEBUTINE MALEATE) UNKNOWN [Concomitant]
  23. IBUPROFEN (IBUPROFEN) UNKNOWN [Concomitant]
  24. ARGININE (ARGININE) UNKNOWN [Concomitant]
  25. DIAZEPAM [Concomitant]
  26. KETOROLAC TROMETHAMINE (KETOROLAC TROMETHAMINE) UNKNOWN [Concomitant]
  27. CEFUROXIME AXETIL (CEFUROXIME AXETIL) UNKNOWN [Concomitant]
  28. LORATADINE [Concomitant]
  29. IVY DRIED LEAF EXTRACT (IVY DRIED LEAF EXTRACT) UNKNOWN [Concomitant]
  30. MONTELUKAST (MONTELUKAST) UNKNOWN [Concomitant]

REACTIONS (1)
  - MACULOPATHY [None]
